FAERS Safety Report 6731324-0 (Version None)
Quarter: 2010Q2

REPORT INFORMATION
  Report Type: 
  Country: None (occurrence: None)
  Receive Date: 20100517
  Receipt Date: 20100517
  Transmission Date: 20101027
  Serious: Yes (Other)
  Sender: FDA-Public Use
  Company Number: None

PATIENT

DRUGS (2)
  1. TRI LO SPRINTEC [Suspect]
     Indication: CONTRACEPTION
     Dosage: 1 PILL FOR 28 DAYS DAILY PO
     Route: 048
     Dates: start: 20090801, end: 20100201
  2. LEVORA 0.15/30-21 [Suspect]
     Indication: CONTRACEPTION
     Dosage: 1 PILL FOR 28 DAYS DAILY PO
     Route: 048
     Dates: start: 20100202, end: 20100301

REACTIONS (2)
  - ABDOMINAL PAIN LOWER [None]
  - ADHESION [None]
